FAERS Safety Report 25482977 (Version 2)
Quarter: 2025Q4

REPORT INFORMATION
  Report Type: Report from Study
  Country: IN (occurrence: IN)
  Receive Date: 20250626
  Receipt Date: 20251210
  Transmission Date: 20260118
  Serious: Yes (Death, Other)
  Sender: ROCHE
  Company Number: IN-ROCHE-10000313958

PATIENT
  Age: 71 Year
  Sex: Male

DRUGS (1)
  1. TECENTRIQ [Suspect]
     Active Substance: ATEZOLIZUMAB
     Indication: Hepatocellular carcinoma
     Route: 042
     Dates: start: 20250524

REACTIONS (10)
  - Off label use [Unknown]
  - Dyspnoea exertional [Unknown]
  - Weight decreased [Unknown]
  - Adhesion [Unknown]
  - Abdominal pain [Unknown]
  - Pain [Unknown]
  - Eructation [Unknown]
  - Urinary retention [Unknown]
  - Back pain [Unknown]
  - Death [Fatal]

NARRATIVE: CASE EVENT DATE: 20250616
